FAERS Safety Report 5363832-1 (Version None)
Quarter: 2007Q2

REPORT INFORMATION
  Report Type: 
  Country: None (occurrence: None)
  Receive Date: 20070620
  Receipt Date: 20070614
  Transmission Date: 20071010
  Serious: Yes (Hospitalization, Other)
  Sender: FDA-Public Use
  Company Number: US-BAYER-200711848BWH

PATIENT
  Sex: Female

DRUGS (1)
  1. CIPROFLOXACIN [Suspect]
     Indication: CYSTITIS
     Dosage: TOTAL DAILY DOSE: 1000 MG  UNIT DOSE: 500 MG
     Route: 048
     Dates: start: 20060915, end: 20060922

REACTIONS (1)
  - CEREBROVASCULAR ACCIDENT [None]
